FAERS Safety Report 7092209-6 (Version None)
Quarter: 2010Q4

REPORT INFORMATION
  Report Type: 
  Country: None (occurrence: None)
  Receive Date: 20101109
  Receipt Date: 20101102
  Transmission Date: 20110411
  Serious: Yes (Other)
  Sender: FDA-Public Use
  Company Number: JP-GENENTECH-308584

PATIENT
  Sex: Female

DRUGS (6)
  1. RITUXIMAB [Suspect]
     Indication: LUPUS NEPHRITIS
     Dosage: 530 MG, UNK
     Dates: start: 20100101
  2. RITUXIMAB [Suspect]
     Indication: SYSTEMIC LUPUS ERYTHEMATOSUS
  3. PREDNISOLONE [Concomitant]
     Indication: LUPUS NEPHRITIS
     Dosage: UNK
  4. MYCOPHENOLATE MOFETIL [Concomitant]
     Indication: LUPUS NEPHRITIS
     Dosage: 1.5 G, QD
  5. TACROLIMUS [Concomitant]
     Indication: LUPUS NEPHRITIS
     Dosage: 3 MG, QD
  6. CYCLOPHOSPHAMIDE [Concomitant]
     Indication: LUPUS NEPHRITIS
     Dosage: 500 MG, Q2W

REACTIONS (4)
  - COMPLEMENT FACTOR DECREASED [None]
  - PLATELET COUNT DECREASED [None]
  - PYREXIA [None]
  - WHITE BLOOD CELL COUNT DECREASED [None]
